FAERS Safety Report 7993280-7 (Version None)
Quarter: 2011Q4

REPORT INFORMATION
  Report Type: 
  Country: None (occurrence: None)
  Receive Date: 20111219
  Receipt Date: 20110830
  Transmission Date: 20120403
  Serious: No
  Sender: FDA-Public Use
  Company Number: US-ASTRAZENECA-2011SE52297

PATIENT
  Age: 68 Year
  Sex: Male

DRUGS (3)
  1. TOPROL-XL [Suspect]
     Dosage: TWICE DAILY
     Route: 048
  2. TOPROL-XL [Suspect]
     Dosage: UNKNOWN
     Route: 048
  3. CRESTOR [Suspect]
     Route: 048

REACTIONS (1)
  - HEART RATE INCREASED [None]
